FAERS Safety Report 7926247-5 (Version None)
Quarter: 2011Q4

REPORT INFORMATION
  Report Type: 
  Country: None (occurrence: None)
  Receive Date: 20111118
  Receipt Date: 20111108
  Transmission Date: 20120403
  Serious: Yes (Hospitalization, Other)
  Sender: FDA-Public Use
  Company Number: US-BIOGENIDEC-2011BI041545

PATIENT
  Age: 58 Year
  Sex: Female

DRUGS (19)
  1. VITAMIN B COMPLEX CAP [Concomitant]
  2. ZOCOR [Concomitant]
  3. DILAUDID [Concomitant]
     Indication: PAIN
  4. NEXIUM [Concomitant]
  5. POTASSIUM CHLORIDE [Concomitant]
  6. SINEMET [Concomitant]
  7. CALCIUM SUPPLEMENT WITH VITAMIN D [Concomitant]
  8. DEMADEX [Concomitant]
  9. FLEXERIL [Concomitant]
     Indication: MUSCLE SPASMS
  10. PROVIGIL [Concomitant]
  11. PREDNISONE TAB [Concomitant]
  12. TYSABRI [Suspect]
     Indication: MULTIPLE SCLEROSIS
     Route: 042
     Dates: start: 20101102
  13. AMANTADINE HCL [Concomitant]
  14. NORCO [Concomitant]
     Indication: BODY TEMPERATURE INCREASED
  15. AVONEX [Concomitant]
     Indication: MULTIPLE SCLEROSIS
     Route: 030
     Dates: start: 20040930
  16. ALDACTONE [Concomitant]
  17. LASIX [Concomitant]
  18. NEURONTIN [Concomitant]
  19. NORCO [Concomitant]
     Indication: PAIN

REACTIONS (8)
  - UPPER RESPIRATORY FUNGAL INFECTION [None]
  - ESCHERICHIA URINARY TRACT INFECTION [None]
  - LEUKOCYTOSIS [None]
  - THROMBOCYTOSIS [None]
  - GASTROINTESTINAL HAEMORRHAGE [None]
  - ANAEMIA [None]
  - OEDEMA PERIPHERAL [None]
  - PNEUMONIA HAEMOPHILUS [None]
